FAERS Safety Report 6185332-1 (Version None)
Quarter: 2009Q2

REPORT INFORMATION
  Report Type: 
  Country: None (occurrence: None)
  Receive Date: 20090511
  Receipt Date: 20090427
  Transmission Date: 20091009
  Serious: Yes (Other)
  Sender: FDA-Public Use
  Company Number: US-TYCO HEALTHCARE/MALLINCKRODT-T200900945

PATIENT
  Sex: Female
  Weight: 62.585 kg

DRUGS (4)
  1. HYDROMORPHONE HCL [Suspect]
     Indication: CANCER PAIN
     Dosage: ONE DOSE
     Route: 048
     Dates: start: 20090422, end: 20090422
  2. ARIMIDEX [Concomitant]
     Indication: BLOOD OESTROGEN
     Dosage: 1 MG, QD
     Route: 048
     Dates: start: 20090301
  3. FASLODEX                           /01285001/ [Concomitant]
     Indication: NEOPLASM MALIGNANT
     Dosage: 250 MG, Q 14 DAYS
     Dates: start: 20090301
  4. TRANXENE [Concomitant]
     Indication: SEDATION
     Dosage: 7.5 MG, QD
     Route: 048

REACTIONS (6)
  - ABNORMAL FAECES [None]
  - BURNING SENSATION [None]
  - DIZZINESS [None]
  - DYSPNOEA [None]
  - PHARYNGEAL OEDEMA [None]
  - VOMITING [None]
